FAERS Safety Report 6099183-X (Version None)
Quarter: 2009Q1

REPORT INFORMATION
  Report Type: 
  Country: None (occurrence: None)
  Receive Date: 20090302
  Receipt Date: 20090218
  Transmission Date: 20090719
  Serious: Yes (Hospitalization, Other)
  Sender: FDA-Public Use
  Company Number: US-JNJCH-2009005253

PATIENT
  Age: 47 Year
  Sex: Female

DRUGS (4)
  1. NICOTINE [Suspect]
     Indication: SMOKING CESSATION THERAPY
     Dosage: TEXT:21 MG PATCH
     Route: 062
     Dates: start: 20080101, end: 20080101
  2. CIMETIDINE [Suspect]
     Dosage: TEXT:NI
     Route: 065
  3. XANAX [Concomitant]
     Dosage: TEXT:NI
     Route: 065
  4. PERCOCET [Concomitant]
     Dosage: TEXT:NI
     Route: 065

REACTIONS (3)
  - CERVICAL VERTEBRAL FRACTURE [None]
  - PNEUMONIA [None]
  - SPINAL FRACTURE [None]
